FAERS Safety Report 17369005 (Version 1)
Quarter: 2020Q1

REPORT INFORMATION
  Report Type: Spontaneous
  Country: US (occurrence: US)
  Receive Date: 20200204
  Receipt Date: 20200204
  Transmission Date: 20200409
  Serious: Yes (Other)
  Sender: FDA-Public Use
  Company Number: NVSC2020US015580

PATIENT
  Sex: Female

DRUGS (2)
  1. PIQRAY [Suspect]
     Active Substance: ALPELISIB
     Indication: BREAST CANCER METASTATIC
     Dosage: UNK
     Route: 048
  2. PIQRAY [Suspect]
     Active Substance: ALPELISIB
     Dosage: 300 MG, QD (ONCE DAILY)
     Route: 048
     Dates: start: 20191201, end: 20200121

REACTIONS (1)
  - Hyperglycaemic hyperosmolar nonketotic syndrome [Recovering/Resolving]

NARRATIVE: CASE EVENT DATE: 20191001
